FAERS Safety Report 9332359 (Version 2)
Quarter: 2013Q2

REPORT INFORMATION
  Report Type: Spontaneous
  Country: JP (occurrence: JP)
  Receive Date: 20130606
  Receipt Date: 20130611
  Transmission Date: 20140414
  Serious: Yes (Other)
  Sender: FDA-Public Use
  Company Number: PHHY2009JP43550

PATIENT
  Age: 74 Year
  Sex: Female
  Weight: 53 kg

DRUGS (6)
  1. GLIVEC [Suspect]
     Indication: GASTROINTESTINAL STROMAL TUMOUR
     Dosage: 400 MG/DAY
     Route: 048
     Dates: start: 20090612, end: 20090630
  2. GLIVEC [Suspect]
     Dosage: 400 MG/DAY
     Route: 048
     Dates: start: 20090702, end: 201003
  3. GLIVEC [Suspect]
     Dosage: UNK UKN, UNK
     Route: 048
     Dates: start: 201004, end: 2010
  4. GLIVEC [Suspect]
     Dosage: UNK UKN, UNK
     Route: 048
     Dates: start: 201008
  5. LASIX [Suspect]
  6. GASTER D [Concomitant]
     Dosage: 20 MG, UNK
     Route: 048
     Dates: start: 20090612

REACTIONS (10)
  - Mucosal erosion [Unknown]
  - Oesophagitis [Recovered/Resolved]
  - Stomatitis [Recovering/Resolving]
  - Hypophagia [Recovering/Resolving]
  - Haematoma [Unknown]
  - Neutrophil count decreased [Recovered/Resolved]
  - Oedema peripheral [Recovering/Resolving]
  - Hypokalaemia [Recovered/Resolved]
  - Pyrexia [Unknown]
  - Pain [Unknown]
